FAERS Safety Report 9527641 (Version 1)
Quarter: 2013Q1

REPORT INFORMATION
  Report Type: Spontaneous
  Country: US (occurrence: None)
  Receive Date: 20130314
  Receipt Date: 20130314
  Transmission Date: 20140127
  Serious: No
  Sender: FDA-Public Use
  Company Number: 1212USA004305

PATIENT
  Age: 54 Year
  Sex: Male

DRUGS (3)
  1. VICTRELIS [Suspect]
     Indication: HEPATITIS C
     Dosage: 800 MG, TID, ORAL
     Route: 048
     Dates: start: 20121023
  2. PEGASYS [Suspect]
  3. RIBASPHERE [Suspect]

REACTIONS (4)
  - Tooth extraction [None]
  - Infection [None]
  - Fatigue [None]
  - Headache [None]
